FAERS Safety Report 7979788-9 (Version None)
Quarter: 2011Q4

REPORT INFORMATION
  Report Type: 
  Country: None (occurrence: None)
  Receive Date: 20111214
  Receipt Date: 20111130
  Transmission Date: 20120403
  Serious: Yes (Hospitalization)
  Sender: FDA-Public Use
  Company Number: GB-ROCHE-517908

PATIENT
  Sex: Female
  Weight: 100.5 kg

DRUGS (6)
  1. XELODA [Suspect]
     Indication: COLON CANCER
     Dosage: THE PATIENT RECEIVED 2 CYCLES. LAST DOSE ON 11 SEP 2007.
     Route: 048
  2. AVASTIN [Suspect]
     Indication: COLON CANCER
     Dosage: FORM REPORTED AS INFUSION. RECENT DOSE ON 28 AUG 2007. RECEIVED 2 CYCLES
     Route: 042
  3. PREDNISOLONE [Concomitant]
     Indication: RHEUMATOID ARTHRITIS
     Route: 048
  4. METOCLOPRAMIDE [Concomitant]
     Indication: NAUSEA
     Route: 048
     Dates: start: 20070807, end: 20070914
  5. TERBINAFINE HCL [Concomitant]
     Indication: LOCALISED INFECTION
     Route: 048
     Dates: start: 20070912, end: 20070912
  6. LANSOPRAZOLE [Concomitant]
     Indication: PROPHYLAXIS
     Route: 048
     Dates: start: 20070101, end: 20070914

REACTIONS (1)
  - CLOSTRIDIUM DIFFICILE COLITIS [None]
